FAERS Safety Report 4291508-0 (Version None)
Quarter: 2004Q1

REPORT INFORMATION
  Report Type: 
  Country: None (occurrence: None)
  Receive Date: 20040126
  Receipt Date: 20031104
  Transmission Date: 20041129
  Serious: No
  Sender: FDA-Public Use
  Company Number: USA030947274

PATIENT
  Age: 62 Year
  Sex: Female
  Weight: 55 kg

DRUGS (4)
  1. FORTEO [Suspect]
     Indication: OSTEOPOROSIS
     Dates: start: 20030908
  2. TRICOR [Concomitant]
  3. ZETIA [Concomitant]
  4. PREDNISONE [Concomitant]

REACTIONS (7)
  - COUGH [None]
  - HEADACHE [None]
  - INFLUENZA [None]
  - LARYNGITIS [None]
  - NASOPHARYNGITIS [None]
  - PAIN [None]
  - PRURITUS [None]
